FAERS Safety Report 21444603 (Version 1)
Quarter: 2022Q4

REPORT INFORMATION
  Report Type: Spontaneous
  Country: US (occurrence: US)
  Receive Date: 20221012
  Receipt Date: 20221012
  Transmission Date: 20230112
  Serious: Yes (Other)
  Sender: FDA-Public Use
  Company Number: US-MLMSERVICE-20220930-3832590-1

PATIENT
  Age: 64 Year
  Sex: Male

DRUGS (4)
  1. OXALIPLATIN [Suspect]
     Active Substance: OXALIPLATIN
     Indication: Rectal cancer stage III
     Dosage: 85 MG/M2, 2 CYCLES
     Route: 065
  2. LEUCOVORIN [Suspect]
     Active Substance: LEUCOVORIN
     Indication: Rectal cancer stage III
     Dosage: 400 MG/M2, 2 CYCLES
     Route: 065
  3. FLUOROURACIL [Suspect]
     Active Substance: FLUOROURACIL
     Indication: Rectal cancer stage III
     Dosage: 400 MG/M2, 2 CYCLES (IV BOLUS)
     Route: 042
  4. FLUOROURACIL [Suspect]
     Active Substance: FLUOROURACIL
     Dosage: 2400 MG/M2, 2 CYCLES (CONTINUOUS INFUSION OVER 46 H EVERY 14 DAYS)

REACTIONS (2)
  - Neurotoxicity [Recovered/Resolved]
  - Fatigue [Unknown]
